FAERS Safety Report 7990404-2 (Version None)
Quarter: 2011Q4

REPORT INFORMATION
  Report Type: 
  Country: None (occurrence: None)
  Receive Date: 20111219
  Receipt Date: 20101027
  Transmission Date: 20120403
  Serious: No
  Sender: FDA-Public Use
  Company Number: US-ASTRAZENECA-2010SE41306

PATIENT
  Age: 73 Year
  Sex: Male

DRUGS (5)
  1. ZETIA [Concomitant]
  2. CRESTOR [Suspect]
     Indication: BLOOD CHOLESTEROL INCREASED
     Route: 048
     Dates: start: 20100421, end: 20100901
  3. ASPIRIN [Concomitant]
  4. COZAAR [Concomitant]
  5. M.V.I. [Concomitant]

REACTIONS (2)
  - ERECTILE DYSFUNCTION [None]
  - MYALGIA [None]
